FAERS Safety Report 20712703 (Version 7)
Quarter: 2025Q4

REPORT INFORMATION
  Report Type: Report from Study
  Country: KR (occurrence: KR)
  Receive Date: 20220415
  Receipt Date: 20251215
  Transmission Date: 20260117
  Serious: Yes (Death, Hospitalization, Other)
  Sender: ABBVIE
  Company Number: KR-ABBVIE-22K-090-4359669-00

PATIENT
  Age: 78 Year
  Sex: Female
  Weight: 40 kg

DRUGS (15)
  1. VENETOCLAX [Suspect]
     Active Substance: VENETOCLAX
     Indication: Acute myeloid leukaemia
     Route: 048
     Dates: start: 20220204, end: 20220204
  2. VENETOCLAX [Suspect]
     Active Substance: VENETOCLAX
     Indication: Acute myeloid leukaemia
     Route: 048
     Dates: start: 20220205, end: 20220205
  3. VENETOCLAX [Suspect]
     Active Substance: VENETOCLAX
     Indication: Acute myeloid leukaemia
     Route: 048
     Dates: start: 20220206, end: 20220206
  4. VENETOCLAX [Suspect]
     Active Substance: VENETOCLAX
     Indication: Acute myeloid leukaemia
     Route: 048
     Dates: start: 20220207, end: 20220404
  5. VIDAZA [Concomitant]
     Active Substance: AZACITIDINE
     Indication: Acute myeloid leukaemia
     Route: 058
     Dates: start: 20220204, end: 20220210
  6. VIDAZA [Concomitant]
     Active Substance: AZACITIDINE
     Indication: Acute myeloid leukaemia
     Route: 058
     Dates: start: 20220307, end: 20220316
  7. Zoylex [Concomitant]
     Indication: Antiviral prophylaxis
     Route: 042
     Dates: start: 20220204, end: 20220208
  8. RAMOSETRON HYDROCHLORIDE [Concomitant]
     Active Substance: RAMOSETRON HYDROCHLORIDE
     Indication: Prophylaxis of nausea and vomiting
     Route: 042
     Dates: start: 20220204, end: 20220210
  9. NOXAFIL [Concomitant]
     Active Substance: POSACONAZOLE
     Indication: Antifungal prophylaxis
     Route: 048
     Dates: start: 20220204, end: 20220307
  10. PENIRAMIN [Concomitant]
     Indication: Allergy prophylaxis
     Dosage: TIME INTERVAL: AS NECESSARY
     Route: 042
     Dates: start: 20220204, end: 20220211
  11. PENIRAMIN [Concomitant]
     Indication: Allergy prophylaxis
     Dosage: TIME INTERVAL: AS NECESSARY
     Route: 042
     Dates: start: 20220407
  12. LENOGRASTIM [Concomitant]
     Active Substance: LENOGRASTIM
     Indication: Acute myeloid leukaemia
     Route: 042
     Dates: start: 20220204, end: 20220211
  13. LENOGRASTIM [Concomitant]
     Active Substance: LENOGRASTIM
     Indication: Acute myeloid leukaemia
     Route: 042
     Dates: start: 20220408
  14. LENOGRASTIM [Concomitant]
     Active Substance: LENOGRASTIM
     Indication: Acute myeloid leukaemia
     Route: 042
     Dates: start: 20220204, end: 20220211
  15. VANCOMYCIN HYDROCHLORIDE [Concomitant]
     Active Substance: VANCOMYCIN HYDROCHLORIDE
     Indication: Acute myeloid leukaemia
     Dosage: 1G
     Route: 042
     Dates: start: 20220416, end: 20220422

REACTIONS (2)
  - Cerebral infarction [Fatal]
  - Pneumonia bacterial [Not Recovered/Not Resolved]

NARRATIVE: CASE EVENT DATE: 20220407
